FAERS Safety Report 7441169-4 (Version None)
Quarter: 2011Q2

REPORT INFORMATION
  Report Type: 
  Country: None (occurrence: None)
  Receive Date: 20110428
  Receipt Date: 20110419
  Transmission Date: 20111010
  Serious: Yes (Death, Hospitalization)
  Sender: FDA-Public Use
  Company Number: 2007BI008952

PATIENT
  Age: 69 Year
  Sex: Male

DRUGS (16)
  1. REGLAN [Concomitant]
  2. NEXIUM [Concomitant]
  3. NORCO [Concomitant]
  4. GABAPENTIN [Concomitant]
  5. ARICEPT [Concomitant]
  6. MACROBID [Concomitant]
  7. FLONASE [Concomitant]
  8. TYSABRI [Suspect]
     Indication: MULTIPLE SCLEROSIS
     Route: 042
     Dates: start: 20070209, end: 20070303
  9. DUONEB [Concomitant]
  10. PROVIGIL [Concomitant]
  11. PROZAC [Concomitant]
  12. LEVOXYL [Concomitant]
  13. IRON SULFATETHIAMIN COMPOUND TAB [Concomitant]
  14. TEGRETOL [Concomitant]
  15. DECLOMYCIN [Concomitant]
  16. ZANAFLEX [Concomitant]

REACTIONS (4)
  - MULTIPLE SCLEROSIS [None]
  - DRUG INEFFECTIVE [None]
  - DEMENTIA [None]
  - PNEUMONIA ASPIRATION [None]
